FAERS Safety Report 19475898 (Version 1)
Quarter: 2021Q2

REPORT INFORMATION
  Report Type: Spontaneous
  Country: US (occurrence: US)
  Receive Date: 20210630
  Receipt Date: 20210630
  Transmission Date: 20210717
  Serious: No
  Sender: FDA-Public Use
  Company Number: US-TEVA-2021-US-1927970

PATIENT
  Age: 36 Year
  Sex: Female

DRUGS (22)
  1. AIMOVIG [Concomitant]
     Active Substance: ERENUMAB-AOOE
  2. UBRELVY [Concomitant]
     Active Substance: UBROGEPANT
  3. ALBUTEROL. [Concomitant]
     Active Substance: ALBUTEROL
  4. MIRENA [Concomitant]
     Active Substance: LEVONORGESTREL
  5. EPIPEN [Concomitant]
     Active Substance: EPINEPHRINE
  6. AUSTEDO [Suspect]
     Active Substance: DEUTETRABENAZINE
     Indication: DYSKINESIA
     Dosage: 24 MILLIGRAM DAILY;
     Route: 065
     Dates: start: 20210607
  7. CLARITIN [Concomitant]
     Active Substance: LORATADINE
  8. BOTOX [Concomitant]
     Active Substance: ONABOTULINUMTOXINA
  9. TOPAMAX [Concomitant]
     Active Substance: TOPIRAMATE
  10. ATORVASTATIN [Concomitant]
     Active Substance: ATORVASTATIN
  11. BUSPIRONE [Concomitant]
     Active Substance: BUSPIRONE HYDROCHLORIDE
  12. LEVOTHYROXINE. [Concomitant]
     Active Substance: LEVOTHYROXINE
  13. HYDROXYZINE [Concomitant]
     Active Substance: HYDROXYZINE HYDROCHLORIDE
  14. FLONASE [Concomitant]
     Active Substance: FLUTICASONE PROPIONATE
  15. TRAZODONE [Concomitant]
     Active Substance: TRAZODONE HYDROCHLORIDE
  16. MELATONIN [Concomitant]
     Active Substance: MELATONIN
  17. REXULTI [Concomitant]
     Active Substance: BREXPIPRAZOLE
  18. BREO ELLIPTA [Concomitant]
     Active Substance: FLUTICASONE FUROATE\VILANTEROL TRIFENATATE
  19. ZOFRAN [Concomitant]
     Active Substance: ONDANSETRON HYDROCHLORIDE
  20. SEROQUEL [Concomitant]
     Active Substance: QUETIAPINE FUMARATE
  21. SERTRALINE [Concomitant]
     Active Substance: SERTRALINE HYDROCHLORIDE
  22. SUMATRIPTAN. [Concomitant]
     Active Substance: SUMATRIPTAN

REACTIONS (1)
  - Insomnia [Unknown]

NARRATIVE: CASE EVENT DATE: 202106
